FAERS Safety Report 5381074-0 (Version None)
Quarter: 2007Q3

REPORT INFORMATION
  Report Type: 
  Country: None (occurrence: None)
  Receive Date: 20070706
  Receipt Date: 20070625
  Transmission Date: 20080115
  Serious: Yes (Other)
  Sender: FDA-Public Use
  Company Number: GB-PFIZER INC-2006154792

PATIENT
  Sex: Male
  Weight: 106 kg

DRUGS (4)
  1. LIPITOR [Suspect]
     Indication: HYPERLIPIDAEMIA
     Route: 048
     Dates: start: 20021028, end: 20061006
  2. AMLODIPINE [Concomitant]
  3. CANDESARTAN [Concomitant]
  4. KETOCONAZOLE [Concomitant]
     Route: 061

REACTIONS (4)
  - ALANINE AMINOTRANSFERASE INCREASED [None]
  - BLOOD CREATINE PHOSPHOKINASE INCREASED [None]
  - BLOOD PRESSURE INCREASED [None]
  - MUSCULOSKELETAL DISORDER [None]
